FAERS Safety Report 9122188 (Version 1)
Quarter: 2013Q1

REPORT INFORMATION
  Report Type: Spontaneous
  Country: US (occurrence: US)
  Receive Date: 20130227
  Receipt Date: 20130227
  Transmission Date: 20140127
  Serious: Yes (Death)
  Sender: FDA-Public Use
  Company Number: PHEH2013US004655

PATIENT
  Sex: Male

DRUGS (1)
  1. FANAPT [Suspect]

REACTIONS (1)
  - Death [Fatal]
